FAERS Safety Report 9387385 (Version 1)
Quarter: 2013Q3

REPORT INFORMATION
  Report Type: Spontaneous
  Country: US (occurrence: US)
  Receive Date: 20130708
  Receipt Date: 20130708
  Transmission Date: 20140515
  Serious: No
  Sender: FDA-Public Use
  Company Number: US-GLAXOSMITHKLINE-A1022507A

PATIENT
  Sex: Female

DRUGS (3)
  1. POTIGA [Suspect]
     Indication: EPILEPSY
     Dosage: 300MG THREE TIMES PER DAY
     Route: 048
     Dates: start: 2013
  2. VIMPAT [Concomitant]
  3. CLOBAZAM [Concomitant]

REACTIONS (1)
  - Chromaturia [Recovered/Resolved]
